FAERS Safety Report 8319447-6 (Version None)
Quarter: 2012Q2

REPORT INFORMATION
  Report Type: 
  Country: None (occurrence: None)
  Receive Date: 20120426
  Receipt Date: 20120426
  Transmission Date: 20120825
  Serious: Yes (Hospitalization)
  Sender: FDA-Public Use
  Company Number: None

PATIENT
  Age: 60 Year
  Sex: Female

DRUGS (40)
  1. NEPHRO LIQUID [Concomitant]
  2. CYANOCOBALAMIN [Concomitant]
  3. SENNA [Concomitant]
  4. AMLODIPINE [Concomitant]
  5. BENADRYL [Concomitant]
  6. QUIETIAPINE [Concomitant]
  7. EPOGEN [Concomitant]
  8. FOLIC ACID [Concomitant]
  9. SIMVASTATIN [Concomitant]
  10. LEVOTHYROXINE SODIUM [Concomitant]
  11. EMLA [Concomitant]
  12. CLONIDINE [Concomitant]
  13. ALBUTEROL [Concomitant]
  14. ARIPIPRAZOLE [Concomitant]
  15. VENOFER [Concomitant]
  16. DOCUSATE [Concomitant]
  17. METOPROLOL TARTRATE [Concomitant]
  18. INSULIN GLARGINE [Concomitant]
  19. HYDROCORTISONE [Concomitant]
  20. TRAVOPOST [Concomitant]
  21. PANTOPRAZOLE [Concomitant]
  22. IPRATROPIUM BROMIDE [Concomitant]
  23. FORMOTEROL FUMARATE [Concomitant]
  24. CALITONIN [Concomitant]
  25. LANTHANUM CARBONATE [Concomitant]
  26. ONDANSETRON [Concomitant]
  27. POLYETHYLENE GLYCOL [Concomitant]
  28. INSULIN ASPART [Concomitant]
  29. HECTOROL [Suspect]
     Dosage: 1.0 MCG 3X QW 1.5 MCG 3X QW 3.0 MCG 3X QW 4.5 MCG 3X QW 9.0 MCG 3X QW 9.0 MCG 3X QW
     Dates: start: 20111006, end: 20111123
  30. HECTOROL [Suspect]
     Dosage: 1.0 MCG 3X QW 1.5 MCG 3X QW 3.0 MCG 3X QW 4.5 MCG 3X QW 9.0 MCG 3X QW 9.0 MCG 3X QW
     Dates: start: 20120308
  31. HECTOROL [Suspect]
     Dosage: 1.0 MCG 3X QW 1.5 MCG 3X QW 3.0 MCG 3X QW 4.5 MCG 3X QW 9.0 MCG 3X QW 9.0 MCG 3X QW
     Dates: start: 20110804, end: 20110816
  32. HECTOROL [Suspect]
     Dosage: 1.0 MCG 3X QW 1.5 MCG 3X QW 3.0 MCG 3X QW 4.5 MCG 3X QW 9.0 MCG 3X QW 9.0 MCG 3X QW
     Dates: start: 20110816, end: 20110816
  33. HECTOROL [Suspect]
     Dosage: 1.0 MCG 3X QW 1.5 MCG 3X QW 3.0 MCG 3X QW 4.5 MCG 3X QW 9.0 MCG 3X QW 9.0 MCG 3X QW
     Dates: start: 20111208, end: 20120307
  34. HECTOROL [Suspect]
     Dosage: 1.0 MCG 3X QW 1.5 MCG 3X QW 3.0 MCG 3X QW 4.5 MCG 3X QW 9.0 MCG 3X QW 9.0 MCG 3X QW
     Dates: start: 20111123, end: 20111207
  35. ROPINIROL [Concomitant]
  36. NEPHRO-VITGE [Concomitant]
  37. GABAPENTIN [Concomitant]
  38. CINACALCET HYDROCHLORIDE [Concomitant]
  39. MEGACE [Concomitant]
  40. TIMOPTIC [Concomitant]

REACTIONS (7)
  - AMYLASE INCREASED [None]
  - PYREXIA [None]
  - HEADACHE [None]
  - NAUSEA [None]
  - PANCREATITIS [None]
  - ABDOMINAL PAIN [None]
  - CHILLS [None]
